FAERS Safety Report 14145130 (Version 4)
Quarter: 2018Q1

REPORT INFORMATION
  Report Type: Spontaneous
  Country: JP (occurrence: JP)
  Receive Date: 20171031
  Receipt Date: 20180109
  Transmission Date: 20180508
  Serious: Yes (Hospitalization, Other)
  Sender: FDA-Public Use
  Company Number: JP-ELI_LILLY_AND_COMPANY-JP201710011836

PATIENT
  Age: 75 Year
  Sex: Male
  Weight: 43 kg

DRUGS (11)
  1. PRASUGREL HYDROCHLORIDE [Suspect]
     Active Substance: PRASUGREL HYDROCHLORIDE
     Dosage: 20 MG, SINGLE
     Route: 048
     Dates: start: 20171023, end: 20171023
  2. PRASUGREL HYDROCHLORIDE [Suspect]
     Active Substance: PRASUGREL HYDROCHLORIDE
     Dosage: 3.75 MG, DAILY
     Route: 048
     Dates: start: 20171024, end: 20171026
  3. TRAZENTA [Concomitant]
     Active Substance: LINAGLIPTIN
     Indication: DIABETES MELLITUS
     Dosage: 5 MG, DAILY
     Route: 048
     Dates: start: 20171011
  4. CRESTOR [Concomitant]
     Active Substance: ROSUVASTATIN CALCIUM
     Indication: ISCHAEMIC CARDIOMYOPATHY
     Dosage: 5 MG, DAILY
     Route: 048
     Dates: start: 20171011
  5. PRASUGREL HYDROCHLORIDE [Suspect]
     Active Substance: PRASUGREL HYDROCHLORIDE
     Indication: ISCHAEMIC CARDIOMYOPATHY
     Dosage: 3.75 MG, DAILY
     Route: 048
     Dates: start: 20171011, end: 20171019
  6. TAKELDA [Concomitant]
     Active Substance: ASPIRIN\LANSOPRAZOLE
     Indication: ISCHAEMIC CARDIOMYOPATHY
     Dosage: 1 DF, DAILY
     Route: 048
     Dates: start: 20171011
  7. SPIRONOLACTONE. [Concomitant]
     Active Substance: SPIRONOLACTONE
     Indication: ISCHAEMIC CARDIOMYOPATHY
     Dosage: 25 MG, DAILY
     Route: 048
     Dates: start: 20171011
  8. CARVEDILOL. [Concomitant]
     Active Substance: CARVEDILOL
     Dosage: 5 UNK, UNK
     Route: 048
     Dates: start: 20171016, end: 20171024
  9. CARVEDILOL. [Concomitant]
     Active Substance: CARVEDILOL
     Dosage: 2.5 MG, DAILY
     Route: 048
     Dates: start: 20171013, end: 20171015
  10. CARVEDILOL. [Concomitant]
     Active Substance: CARVEDILOL
     Indication: ISCHAEMIC CARDIOMYOPATHY
     Dosage: 2.5 MG, DAILY
     Route: 048
     Dates: start: 20171025
  11. MAGNESIUM OXIDE. [Concomitant]
     Active Substance: MAGNESIUM OXIDE
     Indication: CONSTIPATION
     Dosage: 330 MG, TID
     Route: 048
     Dates: start: 20171014

REACTIONS (4)
  - Off label use [Recovered/Resolved]
  - Liver disorder [Recovering/Resolving]
  - Alanine aminotransferase increased [Unknown]
  - Aspartate aminotransferase increased [Unknown]

NARRATIVE: CASE EVENT DATE: 201710
